FAERS Safety Report 18175101 (Version 1)
Quarter: 2020Q3

REPORT INFORMATION
  Report Type: Spontaneous
  Country: US (occurrence: US)
  Receive Date: 20200820
  Receipt Date: 20200820
  Transmission Date: 20201103
  Serious: No
  Sender: FDA-Public Use
  Company Number: US-LUPIN PHARMACEUTICALS INC.-2020-03043

PATIENT
  Sex: Male
  Weight: 65.76 kg

DRUGS (1)
  1. CLOBETASOL PROPIONATE OINTMENT [Suspect]
     Active Substance: CLOBETASOL PROPIONATE
     Indication: GUTTATE PSORIASIS
     Dosage: UNK
     Route: 061

REACTIONS (3)
  - Guttate psoriasis [Unknown]
  - Skin discolouration [Recovered/Resolved]
  - Condition aggravated [Unknown]
